FAERS Safety Report 19588034 (Version 2)
Quarter: 2021Q3

REPORT INFORMATION
  Report Type: Report from Study
  Country: US (occurrence: US)
  Receive Date: 20210721
  Receipt Date: 20210825
  Transmission Date: 20211014
  Serious: Yes (Other)
  Sender: FDA-Public Use
  Company Number: US-ASTRAZENECA-2021A549607

PATIENT
  Sex: Female

DRUGS (4)
  1. LYNPARZA [Suspect]
     Active Substance: OLAPARIB
     Indication: BREAST CANCER FEMALE
     Route: 048
     Dates: start: 20210613
  2. LYNPARZA [Suspect]
     Active Substance: OLAPARIB
     Indication: BREAST CANCER FEMALE
     Route: 048
     Dates: start: 20210613
  3. IBUPROFEN. [Concomitant]
     Active Substance: IBUPROFEN
     Indication: BACK PAIN
  4. LIDOCAINE PATCHES [Concomitant]
     Active Substance: LIDOCAINE
     Indication: BACK PAIN

REACTIONS (12)
  - Product dose omission in error [Unknown]
  - Dysgeusia [Unknown]
  - Photophobia [Unknown]
  - Hot flush [Unknown]
  - Metastases to spine [Unknown]
  - Constipation [Not Recovered/Not Resolved]
  - Asthenia [Unknown]
  - Nausea [Recovering/Resolving]
  - Sleep disorder [Unknown]
  - Decreased appetite [Not Recovered/Not Resolved]
  - Oral pain [Unknown]
  - Headache [Recovered/Resolved]
